FAERS Safety Report 9058858 (Version 1)
Quarter: 2013Q1

REPORT INFORMATION
  Report Type: Spontaneous
  Country: US (occurrence: US)
  Receive Date: 20130204
  Receipt Date: 20130204
  Transmission Date: 20140127
  Serious: Yes (Life-Threatening, Hospitalization, Other)
  Sender: FDA-Public Use
  Company Number: US-009507513-01090610

PATIENT
  Age: 15 None
  Sex: Female
  Weight: 45 kg

DRUGS (16)
  1. CANCIDAS [Suspect]
     Indication: OESOPHAGEAL CANDIDIASIS
     Dosage: 35 MG, UNK
     Route: 042
     Dates: start: 200105, end: 200109
  2. CANCIDAS [Suspect]
     Dosage: 45 MG, UNK
     Route: 042
     Dates: start: 20010801, end: 20010905
  3. BACTRIM [Concomitant]
  4. ZIDOVUDINE [Concomitant]
  5. K-DUR [Concomitant]
  6. PREVACID [Concomitant]
  7. DIDANOSINE [Concomitant]
  8. POLYCITRA [Concomitant]
  9. KALETRA [Concomitant]
  10. CLOTRIMAZOLE [Concomitant]
  11. NYSTATIN [Concomitant]
     Route: 048
  12. ZITHROMAX [Concomitant]
     Dosage: UNK UNK, QW
  13. THERAPY UNSPECIFIED [Concomitant]
  14. PRILOSEC [Concomitant]
  15. DIALOSE [Concomitant]
  16. CLINDAMYCIN HYDROCHLORIDE [Concomitant]

REACTIONS (5)
  - Hypersensitivity [Recovered/Resolved]
  - Anaphylactic reaction [Unknown]
  - Dyspnoea [Unknown]
  - Emotional distress [Unknown]
  - Pruritus [Unknown]
